FAERS Safety Report 19930363 (Version 2)
Quarter: 2022Q1

REPORT INFORMATION
  Report Type: Spontaneous
  Country: BR (occurrence: BR)
  Receive Date: 20211007
  Receipt Date: 20220127
  Transmission Date: 20220423
  Serious: Yes (Hospitalization, Other)
  Sender: FDA-Public Use
  Company Number: BR-NOVARTISPH-NVSC2021BR226542

PATIENT
  Age: 29 Year
  Sex: Female

DRUGS (4)
  1. ETANERCEPT [Suspect]
     Active Substance: ETANERCEPT
     Indication: Product used for unknown indication
     Dosage: UNK, QW
     Route: 065
     Dates: start: 2018
  2. ETANERCEPT [Suspect]
     Active Substance: ETANERCEPT
     Dosage: UNK (EVERY 50 DAYS)
     Route: 065
  3. ETANERCEPT [Suspect]
     Active Substance: ETANERCEPT
     Dosage: UNK
     Route: 065
  4. COSENTYX [Suspect]
     Active Substance: SECUKINUMAB
     Indication: Product used for unknown indication
     Dosage: 300 MG
     Route: 065

REACTIONS (30)
  - Decreased immune responsiveness [Unknown]
  - Tonsillitis [Unknown]
  - Psoriatic arthropathy [Unknown]
  - Inflammation [Unknown]
  - Gait disturbance [Unknown]
  - Contusion [Unknown]
  - Vomiting [Unknown]
  - Retching [Unknown]
  - Hunger [Unknown]
  - Decreased appetite [Unknown]
  - Dysgeusia [Unknown]
  - Feeling hot [Unknown]
  - Asthenia [Unknown]
  - Nausea [Unknown]
  - Tonsillar hypertrophy [Unknown]
  - Illness [Unknown]
  - Insomnia [Unknown]
  - Depression [Unknown]
  - Malaise [Unknown]
  - Emotional disorder [Unknown]
  - Depressed mood [Unknown]
  - Spondylitis [Unknown]
  - Skin exfoliation [Unknown]
  - Skin lesion [Unknown]
  - Headache [Unknown]
  - Rebound effect [Unknown]
  - Pruritus [Unknown]
  - Psoriasis [Unknown]
  - Inappropriate schedule of product administration [Unknown]
  - Drug ineffective [Unknown]
